FAERS Safety Report 14632358 (Version 7)
Quarter: 2018Q2

REPORT INFORMATION
  Report Type: Report from Study
  Country: DE (occurrence: DE)
  Receive Date: 20180313
  Receipt Date: 20180518
  Transmission Date: 20180711
  Serious: Yes (Hospitalization, Other)
  Sender: FDA-Public Use
  Company Number: DE-JNJFOC-20180210683

PATIENT
  Age: 63 Year
  Sex: Male

DRUGS (14)
  1. TOREM [Concomitant]
     Active Substance: TORSEMIDE
     Route: 048
  2. OBINUTUZUMAB. [Suspect]
     Active Substance: OBINUTUZUMAB
     Indication: CHRONIC LYMPHOCYTIC LEUKAEMIA
     Dosage: 3000 MG CYCLE 1, 1000 MG FROM CYCLE 2-6 AS PER PROTOCOL.
     Route: 042
     Dates: start: 20180116, end: 20180131
  3. VENETOCLAX. [Suspect]
     Active Substance: VENETOCLAX
     Indication: CHRONIC LYMPHOCYTIC LEUKAEMIA
     Dosage: CYCLE 1 (LAST 7 DAYS 20 MG DAILY), CYCLE 2 (RAMP UP 50 MG TO 400 MG)
     Route: 048
     Dates: start: 20180222
  4. BISOPROLOL [Concomitant]
     Active Substance: BISOPROLOL
     Route: 048
  5. VENETOCLAX. [Suspect]
     Active Substance: VENETOCLAX
     Indication: CHRONIC LYMPHOCYTIC LEUKAEMIA
     Dosage: CYCLE 1 (LAST 7 DAYS 20 MG DAILY), CYCLE 2 (RAMP UP 50 MG TO 400 MG)
     Route: 048
     Dates: start: 20180306, end: 20180310
  6. ALLOPURINOL. [Concomitant]
     Active Substance: ALLOPURINOL
     Route: 048
  7. TOREM [Concomitant]
     Active Substance: TORSEMIDE
     Route: 048
  8. JODID [Concomitant]
     Active Substance: IODINE
     Route: 048
  9. APIXABAN [Concomitant]
     Active Substance: APIXABAN
     Route: 048
  10. PRADAXA [Concomitant]
     Active Substance: DABIGATRAN ETEXILATE MESYLATE
     Route: 048
  11. TELMISARTAN. [Concomitant]
     Active Substance: TELMISARTAN
  12. IBRUTINIB [Suspect]
     Active Substance: IBRUTINIB
     Indication: CHRONIC LYMPHOCYTIC LEUKAEMIA
     Dosage: CYCLE 1-15
     Route: 048
     Dates: start: 20180116, end: 20180207
  13. HCT [Concomitant]
     Active Substance: HYDROCHLOROTHIAZIDE
     Route: 048
  14. CANDESARTAN. [Concomitant]
     Active Substance: CANDESARTAN
     Route: 048

REACTIONS (7)
  - Generalised tonic-clonic seizure [Not Recovered/Not Resolved]
  - Febrile infection [Not Recovered/Not Resolved]
  - Cystitis escherichia [Recovered/Resolved]
  - Cerebral aspergillosis [Not Recovered/Not Resolved]
  - Febrile neutropenia [Recovered/Resolved]
  - Infection [Recovered/Resolved]
  - Dehydration [Not Recovered/Not Resolved]

NARRATIVE: CASE EVENT DATE: 20180207
